FAERS Safety Report 6944743-4 (Version None)
Quarter: 2010Q3

REPORT INFORMATION
  Report Type: 
  Country: None (occurrence: None)
  Receive Date: 20100823
  Receipt Date: 20100810
  Transmission Date: 20110219
  Serious: Yes (Hospitalization)
  Sender: FDA-Public Use
  Company Number: 014919

PATIENT
  Sex: Female
  Weight: 76 kg

DRUGS (5)
  1. CIMZIA [Suspect]
     Indication: RHEUMATOID ARTHRITIS
     Dosage: (400 MG 1X/MONTH SUBCUTANEOUS)
     Route: 058
     Dates: start: 20100611, end: 20100709
  2. ARAVA [Concomitant]
  3. PREDNISOLONE [Concomitant]
  4. KATADOLON /00890102/ [Concomitant]
  5. PANTOZOL /01263202/ [Concomitant]

REACTIONS (18)
  - ARTHRALGIA [None]
  - CONDITION AGGRAVATED [None]
  - DRUG INEFFECTIVE [None]
  - ECZEMA [None]
  - HAEMATOCRIT DECREASED [None]
  - HAEMOGLOBIN DECREASED [None]
  - HYPERTENSION [None]
  - HYPERTENSIVE HEART DISEASE [None]
  - HYPOGAMMAGLOBULINAEMIA [None]
  - IMPAIRED WORK ABILITY [None]
  - JOINT SWELLING [None]
  - JOINT WARMTH [None]
  - MEAN CELL HAEMOGLOBIN CONCENTRATION DECREASED [None]
  - MEAN CELL HAEMOGLOBIN INCREASED [None]
  - PHOTOSENSITIVITY REACTION [None]
  - RASH [None]
  - RHEUMATOID ARTHRITIS [None]
  - SYNOVITIS [None]
